FAERS Safety Report 20799237 (Version 1)
Quarter: 2022Q2

REPORT INFORMATION
  Report Type: Spontaneous
  Country: US (occurrence: US)
  Receive Date: 20220508
  Receipt Date: 20220508
  Transmission Date: 20220721
  Serious: Yes (Hospitalization)
  Sender: FDA-Public Use
  Company Number: US-TEVA-2022-US-2033008

PATIENT
  Age: 44 Year
  Sex: Female
  Weight: 93 kg

DRUGS (8)
  1. AUSTEDO [Suspect]
     Active Substance: DEUTETRABENAZINE
     Indication: Tardive dyskinesia
     Dosage: 12 MILLIGRAM DAILY;
     Route: 065
     Dates: start: 20220407
  2. Geodan [Concomitant]
  3. GABAPENTIN [Concomitant]
     Active Substance: GABAPENTIN
  4. LEXAPRO [Concomitant]
     Active Substance: ESCITALOPRAM OXALATE
  5. VITAMINS [Concomitant]
     Active Substance: VITAMINS
  6. IRON [Concomitant]
     Active Substance: IRON
  7. RESTORIL [Concomitant]
     Active Substance: TEMAZEPAM
  8. VITAMIN D [Concomitant]
     Active Substance: VITAMIN D NOS

REACTIONS (12)
  - Confusional state [Unknown]
  - Dysarthria [Unknown]
  - Discomfort [Unknown]
  - Paraesthesia [Unknown]
  - Asthenia [Unknown]
  - Chest pain [Unknown]
  - Muscular weakness [Unknown]
  - Pain in extremity [Unknown]
  - Miosis [Unknown]
  - Gait inability [Not Recovered/Not Resolved]
  - Wheelchair user [Not Recovered/Not Resolved]
  - Spasmodic dysphonia [Unknown]
